FAERS Safety Report 9919194 (Version 3)
Quarter: 2014Q2

REPORT INFORMATION
  Report Type: Spontaneous
  Country: US (occurrence: US)
  Receive Date: 20140224
  Receipt Date: 20140401
  Transmission Date: 20141212
  Serious: Yes (Congenital Anomaly, Other)
  Sender: FDA-Public Use
  Company Number: US-PFIZER INC-2014049250

PATIENT
  Sex: Male

DRUGS (15)
  1. ZOLOFT [Suspect]
     Dosage: UNK
     Route: 064
     Dates: start: 20100713
  2. SERTRALINE HCL [Suspect]
     Dosage: UNK
     Route: 064
     Dates: start: 20100713
  3. PRENATAL VITAMINS [Concomitant]
     Dosage: UNK
     Route: 064
  4. TRAMADOL [Concomitant]
     Dosage: UNK
     Route: 064
  5. METRONIDAZOLE [Concomitant]
     Dosage: UNK
     Route: 064
  6. PRIMAQUINE [Concomitant]
     Dosage: UNK
     Route: 064
  7. CLOTRIMAZOLE [Concomitant]
     Dosage: UNK
     Route: 064
  8. YAZ [Concomitant]
     Dosage: UNK
     Route: 064
  9. FLUCONAZOLE [Concomitant]
     Dosage: UNK
     Route: 064
  10. DOXYCYCLINE [Concomitant]
     Dosage: UNK
     Route: 064
  11. ROBAXIN [Concomitant]
     Dosage: UNK
     Route: 064
  12. NAPROXEN [Concomitant]
     Dosage: UNK
     Route: 064
  13. ISONIAZID [Concomitant]
     Dosage: UNK
     Route: 064
  14. AMOXICILLIN [Concomitant]
     Dosage: UNK
     Route: 064
  15. POTASSIUM PHOSPHATE [Concomitant]
     Dosage: UNK
     Route: 064

REACTIONS (3)
  - Maternal exposure during pregnancy [Unknown]
  - Cleft lip [Unknown]
  - Cleft palate [Unknown]
